FAERS Safety Report 11268095 (Version 1)
Quarter: 2015Q3

REPORT INFORMATION
  Report Type: Spontaneous
  Country: IT (occurrence: IT)
  Receive Date: 20150714
  Receipt Date: 20150714
  Transmission Date: 20151125
  Serious: Yes (Hospitalization)
  Sender: FDA-Public Use
  Company Number: IT-AUROBINDO-AUR-APL-2015-05761

PATIENT
  Age: 47 Year
  Sex: Female
  Weight: 65 kg

DRUGS (1)
  1. RISPERIDONE AUROBINDO ORAL SOLUTION [Suspect]
     Active Substance: RISPERIDONE
     Indication: PRODUCT USED FOR UNKNOWN INDICATION
     Dosage: 10 ML, TOTAL
     Route: 048
     Dates: start: 20150211, end: 20150211

REACTIONS (3)
  - Medication error [Recovered/Resolved]
  - Somnolence [Recovered/Resolved]
  - Drug administered to patient of inappropriate age [None]

NARRATIVE: CASE EVENT DATE: 20150211
